FAERS Safety Report 9384612 (Version 1)
Quarter: 2013Q2

REPORT INFORMATION
  Report Type: Spontaneous
  Country: TR (occurrence: None)
  Receive Date: 20130628
  Receipt Date: 20130628
  Transmission Date: 20140414
  Serious: Yes (Hospitalization)
  Sender: FDA-Public Use
  Company Number: SYM-2013-05142

PATIENT
  Age: 55 Year
  Sex: Male

DRUGS (1)
  1. BUPROPION (BUPROPION) (BUPROPION) [Suspect]
     Indication: SMOKING CESSATION THERAPY

REACTIONS (7)
  - Diarrhoea [None]
  - Renal failure acute [None]
  - Confusional state [None]
  - Grand mal convulsion [None]
  - Altered state of consciousness [None]
  - Thrombotic thrombocytopenic purpura [None]
  - Haemodialysis [None]
